FAERS Safety Report 18604508 (Version 6)
Quarter: 2025Q3

REPORT INFORMATION
  Report Type: Spontaneous
  Country: EU (occurrence: EU)
  Receive Date: 20201211
  Receipt Date: 20250916
  Transmission Date: 20251021
  Serious: Yes (Hospitalization, Other)
  Sender: AUROBINDO
  Company Number: EU-002147023-NVSC2020IT325245

PATIENT
  Age: 69 Year
  Sex: Male

DRUGS (3)
  1. IMATINIB [Suspect]
     Active Substance: IMATINIB
     Indication: Philadelphia positive acute lymphocytic leukaemia
     Dosage: 600 MILLIGRAM, ONCE A DAY
     Route: 065
  2. IMATINIB [Suspect]
     Active Substance: IMATINIB
     Indication: Philadelphia chromosome positive
     Dosage: 400 MILLIGRAM, ONCE A DAY, DOSE ADJUSTMENT
     Route: 065
  3. IMATINIB [Suspect]
     Active Substance: IMATINIB
     Dosage: 600 MILLIGRAM, ONCE A DAY, RESUMED THE FULL DOSE,
     Route: 065

REACTIONS (4)
  - Haemorrhage subcutaneous [Unknown]
  - Gastrointestinal haemorrhage [Recovered/Resolved]
  - Platelet dysfunction [Recovered/Resolved]
  - Skin haemorrhage [Recovered/Resolved]
